FAERS Safety Report 16729397 (Version 4)
Quarter: 2025Q4

REPORT INFORMATION
  Report Type: Spontaneous
  Country: EU (occurrence: EU)
  Receive Date: 20190822
  Receipt Date: 20251112
  Transmission Date: 20260117
  Serious: Yes (Death, Life-Threatening, Hospitalization, Other)
  Sender: BAYER HEALTHCARE PHARMACEUTICALS INC.
  Company Number: EU-BAYER-2019-150391

PATIENT
  Age: 46 Year
  Sex: Female

DRUGS (25)
  1. CIPROFLOXACIN [Suspect]
     Active Substance: CIPROFLOXACIN
     Indication: Urinary tract infection
     Dosage: UNK
     Route: 065
  2. CIPROFLOXACIN [Suspect]
     Active Substance: CIPROFLOXACIN
     Indication: Bacterial test positive
  3. CIPROFLOXACIN [Suspect]
     Active Substance: CIPROFLOXACIN
     Indication: Antibiotic therapy
  4. AMOXICILLIN\CLAVULANATE POTASSIUM [Interacting]
     Active Substance: AMOXICILLIN\CLAVULANATE POTASSIUM
     Indication: Urinary tract infection
     Dosage: UNK
     Route: 065
  5. AMOXICILLIN\CLAVULANATE POTASSIUM [Interacting]
     Active Substance: AMOXICILLIN\CLAVULANATE POTASSIUM
     Indication: Bacterial test positive
     Dosage: UNK
  6. LEVOFLOXACIN [Interacting]
     Active Substance: LEVOFLOXACIN
     Indication: Product used for unknown indication
     Dosage: UNK
  7. LEVOFLOXACIN [Interacting]
     Active Substance: LEVOFLOXACIN
     Indication: Antibiotic therapy
     Dosage: UNK
     Route: 065
  8. LEVOFLOXACIN [Interacting]
     Active Substance: LEVOFLOXACIN
     Indication: Bacterial infection
  9. SULFAMETHOXAZOLE\TRIMETHOPRIM [Interacting]
     Active Substance: SULFAMETHOXAZOLE\TRIMETHOPRIM
     Indication: Bacterial infection
     Dosage: UNK
     Route: 065
  10. SULFAMETHOXAZOLE\TRIMETHOPRIM [Interacting]
     Active Substance: SULFAMETHOXAZOLE\TRIMETHOPRIM
     Indication: Bacteriuria
  11. NIFUROXAZIDE [Interacting]
     Active Substance: NIFUROXAZIDE
     Indication: Urinary tract infection
     Dosage: UNK
  12. NIFUROXAZIDE [Interacting]
     Active Substance: NIFUROXAZIDE
     Indication: Abdominal pain
  13. NIFUROXAZIDE [Interacting]
     Active Substance: NIFUROXAZIDE
     Indication: Urinary tract infection
     Dosage: UNK
  14. ARIPIPRAZOLE [Interacting]
     Active Substance: ARIPIPRAZOLE
     Indication: Bipolar disorder
     Dosage: 7.5 MG, QD
     Route: 048
  15. PANTOPRAZOLE [Interacting]
     Active Substance: PANTOPRAZOLE
     Indication: Gastrooesophageal reflux disease
     Dosage: 40 MG, QD
     Route: 048
  16. ITOPRIDE [Interacting]
     Active Substance: ITOPRIDE
     Indication: Gastrooesophageal reflux disease
     Dosage: 150 MG, QD
     Route: 048
  17. ITOPRIDE [Interacting]
     Active Substance: ITOPRIDE
     Indication: Reflux gastritis
     Dosage: 50 MG, QD
     Route: 048
  18. CEFUROXIME AXETIL [Interacting]
     Active Substance: CEFUROXIME AXETIL
     Indication: Product used for unknown indication
     Dosage: UNK
     Route: 065
  19. CEFUROXIME AXETIL [Interacting]
     Active Substance: CEFUROXIME AXETIL
     Indication: Antibiotic therapy
     Dosage: 50 MG, QD
     Route: 048
  20. CEFUROXIME AXETIL [Interacting]
     Active Substance: CEFUROXIME AXETIL
     Indication: Bacterial infection
  21. CLAVULANIC ACID [Suspect]
     Active Substance: CLAVULANIC ACID
     Indication: Bacteriuria
  22. OLANZAPINE [Interacting]
     Active Substance: OLANZAPINE
     Indication: Bipolar disorder
     Dosage: 10 MILLIGRAM, QD
     Route: 048
  23. TRIMETHOPRIM [Interacting]
     Active Substance: TRIMETHOPRIM
     Indication: Bacteriuria
  24. OLANZAPINE [Interacting]
     Active Substance: OLANZAPINE
     Indication: Bipolar disorder
     Dosage: 10 MG, QD
     Route: 048
  25. ELECTROLYTES NOS [Suspect]
     Active Substance: ELECTROLYTES NOS
     Route: 048

REACTIONS (33)
  - Peritonitis [Fatal]
  - Labelled drug-drug interaction medication error [Not Recovered/Not Resolved]
  - Clostridium difficile infection [Fatal]
  - Intestinal perforation [Fatal]
  - Pseudomembranous colitis [Not Recovered/Not Resolved]
  - Pyrexia [Not Recovered/Not Resolved]
  - Diarrhoea [Not Recovered/Not Resolved]
  - Drug ineffective [Unknown]
  - General physical health deterioration [Not Recovered/Not Resolved]
  - Urinary tract infection bacterial [Fatal]
  - Dyspepsia [Unknown]
  - Abdominal pain upper [Not Recovered/Not Resolved]
  - Megacolon [Fatal]
  - Gastrooesophageal reflux disease [Unknown]
  - Drug resistance [Unknown]
  - Dysgeusia [Not Recovered/Not Resolved]
  - Breath odour [Unknown]
  - Urine odour abnormal [Not Recovered/Not Resolved]
  - White blood cells urine positive [Unknown]
  - Oral discomfort [Unknown]
  - Condition aggravated [Not Recovered/Not Resolved]
  - Drug interaction [Not Recovered/Not Resolved]
  - Abdominal pain upper [Unknown]
  - Inhibitory drug interaction [Not Recovered/Not Resolved]
  - Taste disorder [Not Recovered/Not Resolved]
  - Bacterial test positive [Fatal]
  - Drug ineffective [Unknown]
  - Trimethylaminuria [Fatal]
  - Dysbiosis [Unknown]
  - Condition aggravated [Not Recovered/Not Resolved]
  - Parosmia [Unknown]
  - Dysbiosis [Not Recovered/Not Resolved]
  - Urine odour abnormal [Fatal]
